FAERS Safety Report 18981459 (Version 1)
Quarter: 2021Q1

REPORT INFORMATION
  Report Type: Spontaneous
  Country: US (occurrence: US)
  Receive Date: 20210308
  Receipt Date: 20210308
  Transmission Date: 20210420
  Serious: Yes (Other)
  Sender: FDA-Public Use
  Company Number: US-INSUD PHARMA-2102US00230

PATIENT
  Age: 30 Year
  Sex: Male

DRUGS (4)
  1. TESTOSTERONE. [Suspect]
     Active Substance: TESTOSTERONE
     Indication: TRANSGENDER HORMONAL THERAPY
     Dosage: INITIATED AT 100 MG/WK
     Route: 030
     Dates: start: 2013, end: 2015
  2. TESTOSTERONE. [Suspect]
     Active Substance: TESTOSTERONE
     Dosage: STOPPED DUE TO HS
     Dates: start: 2017, end: 2017
  3. TESTOSTERONE. [Suspect]
     Active Substance: TESTOSTERONE
     Dosage: RESTARTED AT 50 MG/WK
     Route: 030
     Dates: start: 2017
  4. TESTOSTERONE. [Suspect]
     Active Substance: TESTOSTERONE
     Dosage: INCREASED TO 140 MG/WK AFTER 1.5 YRS
     Route: 030
     Dates: start: 2015, end: 2017

REACTIONS (8)
  - Subcutaneous abscess [Recovering/Resolving]
  - Skin weeping [Recovering/Resolving]
  - Procedural complication [Recovering/Resolving]
  - Post procedural drainage [Recovering/Resolving]
  - Pain [Recovering/Resolving]
  - Hidradenitis [Recovering/Resolving]
  - Skin mass [Recovering/Resolving]
  - Acne [Recovering/Resolving]

NARRATIVE: CASE EVENT DATE: 2014
